FAERS Safety Report 26025500 (Version 2)
Quarter: 2025Q4

REPORT INFORMATION
  Report Type: Report from Study
  Country: JP (occurrence: JP)
  Receive Date: 20251111
  Receipt Date: 20251204
  Transmission Date: 20260117
  Serious: Yes (Other)
  Sender: BRISTOL-MYERS SQUIBB COMPANY
  Company Number: JP-ONO-2025JP019006

PATIENT
  Age: 70 Year
  Sex: Male
  Weight: 56.6 kg

DRUGS (3)
  1. OPDIVO [Suspect]
     Active Substance: NIVOLUMAB
     Indication: Squamous cell carcinoma of lung
     Dosage: 360 MG
     Route: 041
     Dates: start: 20240116, end: 20240116
  2. CARBOPLATIN [Concomitant]
     Active Substance: CARBOPLATIN
     Indication: Squamous cell carcinoma of lung
     Dosage: AUC 6
     Dates: start: 20240116, end: 20240116
  3. PACLITAXEL [Concomitant]
     Active Substance: PACLITAXEL
     Indication: Squamous cell carcinoma of lung
     Dosage: 200 MG/M2
     Dates: start: 20240116, end: 20240116

REACTIONS (2)
  - Immune-mediated enterocolitis [Recovered/Resolved]
  - Post procedural fistula [Recovered/Resolved]

NARRATIVE: CASE EVENT DATE: 20240123
